FAERS Safety Report 7424236-0 (Version None)
Quarter: 2011Q2

REPORT INFORMATION
  Report Type: 
  Country: None (occurrence: None)
  Receive Date: 20110411
  Receipt Date: 20110331
  Transmission Date: 20111010
  Serious: Yes (Hospitalization)
  Sender: FDA-Public Use
  Company Number: OMPQ-PR-1103S-0291

PATIENT
  Age: 41 Year
  Sex: Male

DRUGS (2)
  1. OMNIPAQUE 70 [Suspect]
     Indication: DYSPNOEA
     Dosage: 100 ML, SINGLE DOSE, INTRAVENOUS
     Route: 042
     Dates: start: 20110329, end: 20110329
  2. OMNIPAQUE 70 [Suspect]
     Indication: CHEST PAIN
     Dosage: 100 ML, SINGLE DOSE, INTRAVENOUS
     Route: 042
     Dates: start: 20110329, end: 20110329

REACTIONS (7)
  - RETCHING [None]
  - NAUSEA [None]
  - CHEST PAIN [None]
  - CONDITION AGGRAVATED [None]
  - VOMITING [None]
  - PNEUMONIA [None]
  - DYSPNOEA [None]
